FAERS Safety Report 5179203-7 (Version None)
Quarter: 2006Q4

REPORT INFORMATION
  Report Type: 
  Country: None (occurrence: None)
  Receive Date: 20061211
  Receipt Date: 20061128
  Transmission Date: 20070319
  Serious: Yes (Other)
  Sender: FDA-Public Use
  Company Number: HQWYE075406AUG04

PATIENT
  Age: 45 Year
  Sex: 0

DRUGS (2)
  1. PREMARIN [Suspect]
  2. PROVERA [Suspect]

REACTIONS (3)
  - BREAST CANCER RECURRENT [None]
  - OESTROGEN RECEPTOR ASSAY POSITIVE [None]
  - PROGESTERONE RECEPTOR ASSAY POSITIVE [None]
